FAERS Safety Report 8920826 (Version 1)
Quarter: 2012Q4

REPORT INFORMATION
  Report Type: 
  Country: US (occurrence: US)
  Receive Date: 20121122
  Receipt Date: 20121122
  Transmission Date: 20130627
  Serious: No
  Sender: FDA-Public Use
  Company Number: US-PFIZER INC-2012291589

PATIENT
  Sex: Female

DRUGS (2)
  1. PRISTIQ [Suspect]
     Indication: DEPRESSION
     Dosage: 50 mg, daily
     Dates: start: 2012
  2. VIVELLE-DOT [Concomitant]
     Indication: HORMONE REPLACEMENT THERAPY
     Dosage: 0.1 mg, daily

REACTIONS (1)
  - Galactorrhoea [Not Recovered/Not Resolved]
